FAERS Safety Report 5833052-2 (Version None)
Quarter: 2008Q3

REPORT INFORMATION
  Report Type: 
  Country: None (occurrence: None)
  Receive Date: 20080805
  Receipt Date: 20080724
  Transmission Date: 20090109
  Serious: Yes (Life-Threatening)
  Sender: FDA-Public Use
  Company Number: JP-ASTRAZENECA-2008AP00781

PATIENT
  Age: 779 Month
  Sex: Male

DRUGS (8)
  1. SEROQUEL [Suspect]
     Indication: SCHIZOPHRENIA, PARANOID TYPE
     Route: 048
     Dates: start: 20071019, end: 20071019
  2. SEROQUEL [Suspect]
     Route: 048
     Dates: start: 20071020, end: 20071214
  3. DIAZEPAM [Concomitant]
     Indication: PROPHYLAXIS
     Route: 048
     Dates: start: 20071019, end: 20071019
  4. AMOBAN [Concomitant]
     Indication: PROPHYLAXIS
     Route: 048
     Dates: start: 20071019, end: 20071019
  5. NORVASC [Concomitant]
     Route: 048
     Dates: start: 20071020
  6. VOLLEY [Concomitant]
     Route: 061
     Dates: start: 20071020
  7. LAMISIL [Concomitant]
     Route: 048
     Dates: start: 20071020
  8. YODEL S [Concomitant]
     Indication: PROPHYLAXIS
     Route: 048
     Dates: start: 20071019

REACTIONS (1)
  - ACUTE LEUKAEMIA [None]
